FAERS Safety Report 18760713 (Version 1)
Quarter: 2021Q1

REPORT INFORMATION
  Report Type: Report from Study
  Country: US (occurrence: US)
  Receive Date: 20210119
  Receipt Date: 20210119
  Transmission Date: 20210419
  Serious: No
  Sender: FDA-Public Use
  Company Number: US-REGENERON PHARMACEUTICALS, INC.-2021-13903

PATIENT

DRUGS (1)
  1. CASIRIVIMAB AND IMDEVIMAB [Suspect]
     Active Substance: CASIRIVIMAB\IMDEVIMAB
     Indication: PRODUCT USED FOR UNKNOWN INDICATION
     Dosage: EVENT HAPPENED BEFORE ADMINISTRATION OF COMBINATION THERAPY
     Route: 065

REACTIONS (3)
  - Product packaging confusion [Unknown]
  - Intercepted product administration error [Unknown]
  - Product preparation error [Unknown]
